FAERS Safety Report 18185677 (Version 1)
Quarter: 2020Q3

REPORT INFORMATION
  Report Type: Spontaneous
  Country: DE (occurrence: DE)
  Receive Date: 20200824
  Receipt Date: 20200824
  Transmission Date: 20201103
  Serious: Yes (Hospitalization)
  Sender: FDA-Public Use
  Company Number: DE-TEVA-2020-DE-1817116

PATIENT
  Age: 92 Year
  Sex: Female

DRUGS (6)
  1. PIPAMPERON [Suspect]
     Active Substance: PIPAMPERONE HYDROCHLORIDE
     Dosage: 10 MILLIGRAM DAILY; 5 MG, 0?1?0?1
  2. COLECALCIFEROL (VITAMIN D)/CALCIUM [Concomitant]
     Dosage: FOUR TIMES A WEEK
  3. ACETYLSALICYLSAURE [Concomitant]
     Active Substance: ASPIRIN
     Dosage: 100 MILLIGRAM DAILY;  0?1?0?0
  4. VENLAFAXIN [Suspect]
     Active Substance: VENLAFAXINE HYDROCHLORIDE
     Dosage: 75 MILLIGRAM DAILY;  1?0?0?0
  5. RISPERIDONE. [Suspect]
     Active Substance: RISPERIDONE
     Dosage: 2 DOSAGE FORMS DAILY; 0.25 MG, 0?0?2?0
  6. PANTOPRAZOL [Concomitant]
     Active Substance: PANTOPRAZOLE SODIUM
     Dosage: 40 MILLIGRAM DAILY;  0?0?1?0

REACTIONS (4)
  - Contusion [Recovering/Resolving]
  - Hypothermia [Recovering/Resolving]
  - Brain contusion [Recovering/Resolving]
  - Fall [Recovering/Resolving]
